FAERS Safety Report 7060725-9 (Version None)
Quarter: 2010Q4

REPORT INFORMATION
  Report Type: 
  Country: None (occurrence: None)
  Receive Date: 20101025
  Receipt Date: 20101013
  Transmission Date: 20110411
  Serious: Yes (Other)
  Sender: FDA-Public Use
  Company Number: TR-BAYER-201042231GPV

PATIENT
  Age: 47 Year
  Sex: Male

DRUGS (1)
  1. ULTRAVIST 300 [Suspect]
     Indication: CORONARY ANGIOPLASTY

REACTIONS (5)
  - AGITATION [None]
  - CONFUSIONAL STATE [None]
  - ENCEPHALOPATHY [None]
  - HEADACHE [None]
  - NAUSEA [None]
